FAERS Safety Report 10055631 (Version 1)
Quarter: 2014Q2

REPORT INFORMATION
  Report Type: Spontaneous
  Country: None (occurrence: None)
  Receive Date: 20140402
  Receipt Date: 20140402
  Transmission Date: 20141212
  Serious: Yes (Other)
  Sender: FDA-Public Use
  Company Number: None

PATIENT
  Age: 53 Year
  Sex: Female
  Weight: 121.56 kg

DRUGS (1)
  1. Z-PACK AZITHROMYCIN 250 MG TEVA [Suspect]
     Indication: BRONCHITIS
     Dates: start: 20130425, end: 20130429

REACTIONS (2)
  - Anosmia [None]
  - Dysgeusia [None]
